FAERS Safety Report 16987691 (Version 1)
Quarter: 2019Q4

REPORT INFORMATION
  Report Type: Report from Study
  Country: None (occurrence: IL)
  Receive Date: 20191104
  Receipt Date: 20191104
  Transmission Date: 20200122
  Serious: Yes (Hospitalization)
  Sender: FDA-Public Use
  Company Number: IL-ABBVIE-19K-082-2982319-00

PATIENT
  Age: 77 Year
  Sex: Female

DRUGS (4)
  1. DUODOPA [Suspect]
     Active Substance: CARBIDOPA\LEVODOPA
     Indication: PARKINSON^S DISEASE
     Dosage: MD:3ML, CDD 2.5ML/HOUR,CND 1.5ML/HOUR, ED 0.8ML
     Route: 050
  2. ETUMINA [Suspect]
     Active Substance: CLOTHIAPINE
     Indication: PRODUCT USED FOR UNKNOWN INDICATION
     Route: 065
  3. DUODOPA [Suspect]
     Active Substance: CARBIDOPA\LEVODOPA
     Dosage: MD:3ML, CDD 2 ML/HOUR,CND 1.5ML/HOUR, ED 0.8ML
     Route: 050
     Dates: start: 20180207
  4. DUODOPA [Suspect]
     Active Substance: CARBIDOPA\LEVODOPA
     Dosage: CURRENT:?MORNING DOSE 3ML,?CONTINUOUS DOSE 2.0ML/HOUR,?EXTRA DOSE 0.8ML
     Route: 050

REACTIONS (6)
  - Asthenia [Unknown]
  - Dysstasia [Unknown]
  - Transient ischaemic attack [Unknown]
  - Facial paresis [Unknown]
  - Drooling [Unknown]
  - Somnolence [Unknown]

NARRATIVE: CASE EVENT DATE: 2019
